FAERS Safety Report 14207664 (Version 1)
Quarter: 2017Q4

REPORT INFORMATION
  Report Type: Spontaneous
  Country: US (occurrence: US)
  Receive Date: 20171121
  Receipt Date: 20171121
  Transmission Date: 20180321
  Serious: No
  Sender: FDA-Public Use
  Company Number: US-JNJFOC-20171034928

PATIENT
  Age: 71 Year
  Sex: Female

DRUGS (13)
  1. TYLENOL [Concomitant]
     Active Substance: ACETAMINOPHEN
  2. LASIX [Concomitant]
     Active Substance: FUROSEMIDE
  3. ZOCOR [Concomitant]
     Active Substance: SIMVASTATIN
  4. SYNTHROID [Concomitant]
     Active Substance: LEVOTHYROXINE SODIUM
  5. LOTREL [Concomitant]
     Active Substance: AMLODIPINE BESYLATE\BENAZEPRIL HYDROCHLORIDE
  6. IMODIUM [Concomitant]
     Active Substance: LOPERAMIDE HYDROCHLORIDE
  7. PHENERGAN [Concomitant]
     Active Substance: PROMETHAZINE HYDROCHLORIDE
  8. IMBRUVICA [Suspect]
     Active Substance: IBRUTINIB
     Indication: NON-HODGKIN^S LYMPHOMA
     Route: 048
     Dates: start: 20170710
  9. INDERAL [Concomitant]
     Active Substance: PROPRANOLOL HYDROCHLORIDE
  10. PROTONIX [Concomitant]
     Active Substance: PANTOPRAZOLE SODIUM
  11. LOMOTIL [Concomitant]
     Active Substance: ATROPINE SULFATE\DIPHENOXYLATE HYDROCHLORIDE
  12. VITAMIN D [Concomitant]
     Active Substance: CHOLECALCIFEROL
  13. LORATADINE. [Concomitant]
     Active Substance: LORATADINE

REACTIONS (2)
  - Increased appetite [Unknown]
  - Weight increased [Unknown]

NARRATIVE: CASE EVENT DATE: 201707
